FAERS Safety Report 6691760-8 (Version None)
Quarter: 2010Q2

REPORT INFORMATION
  Report Type: 
  Country: None (occurrence: None)
  Receive Date: 20100422
  Receipt Date: 20090421
  Transmission Date: 20101027
  Serious: No
  Sender: FDA-Public Use
  Company Number: US-ASTRAZENECA-2009UW06481

PATIENT
  Age: 70 Year
  Sex: Female
  Weight: 62.6 kg

DRUGS (6)
  1. METOPROLOL SUCCINATE [Suspect]
     Indication: SUPRAVENTRICULAR TACHYCARDIA
     Dosage: 100 MG IN THE MORNING AND 50 MG AT NIGHT
     Route: 048
     Dates: start: 20070901
  2. METOPROLOL SUCCINATE [Suspect]
     Indication: HYPERTENSION
     Dosage: 100 MG IN THE MORNING AND 50 MG AT NIGHT
     Route: 048
     Dates: start: 20070901
  3. AVAPRO [Concomitant]
  4. LIPITOR [Concomitant]
  5. HYDROCHLOROTHIAZIDE [Concomitant]
  6. QUINAPRIL [Concomitant]

REACTIONS (8)
  - ARTHRALGIA [None]
  - ASTHENIA [None]
  - BONE PAIN [None]
  - GROIN PAIN [None]
  - MUSCLE SPASMS [None]
  - MUSCULAR WEAKNESS [None]
  - PAIN IN EXTREMITY [None]
  - SLEEP DISORDER [None]
